FAERS Safety Report 13212695 (Version 1)
Quarter: 2017Q1

REPORT INFORMATION
  Report Type: Spontaneous
  Country: FR (occurrence: FR)
  Receive Date: 20170210
  Receipt Date: 20170210
  Transmission Date: 20170428
  Serious: Yes (Hospitalization)
  Sender: FDA-Public Use
  Company Number: FR-PFIZER INC-2017052880

PATIENT
  Age: 68 Year
  Sex: Male

DRUGS (7)
  1. TAHOR [Suspect]
     Active Substance: ATORVASTATIN CALCIUM
     Indication: PROPHYLAXIS
     Dosage: 40 MG, 1X/DAY
     Route: 048
     Dates: start: 20151027, end: 20170119
  2. TRANXENE T-TAB [Concomitant]
     Active Substance: CLORAZEPATE DIPOTASSIUM
     Dosage: UNK
     Dates: start: 2012
  3. PAROXETINE. [Concomitant]
     Active Substance: PAROXETINE
     Dosage: UNK
     Dates: start: 2012
  4. ESIDREX [Suspect]
     Active Substance: HYDROCHLOROTHIAZIDE
     Indication: HYPERTENSION
     Dosage: 25 MG, 1X/DAY
     Route: 048
     Dates: start: 20151027, end: 20170119
  5. KERLONE [Concomitant]
     Active Substance: BETAXOLOL HYDROCHLORIDE
     Dosage: UNK
     Dates: start: 2012
  6. PANTOPRAZOLE [Concomitant]
     Active Substance: PANTOPRAZOLE SODIUM
     Dosage: UNK
     Dates: start: 2012
  7. PRAZEPAM [Concomitant]
     Active Substance: PRAZEPAM
     Dosage: UNK
     Dates: start: 2012

REACTIONS (1)
  - Pruritus [Not Recovered/Not Resolved]

NARRATIVE: CASE EVENT DATE: 201607
